FAERS Safety Report 9937308 (Version 5)
Quarter: 2014Q2

REPORT INFORMATION
  Report Type: Spontaneous
  Country: PT (occurrence: PT)
  Receive Date: 20140302
  Receipt Date: 20140513
  Transmission Date: 20141212
  Serious: Yes (Other)
  Sender: FDA-Public Use
  Company Number: PT-AMGEN-PRTSP2014014528

PATIENT
  Age: 56 Year
  Sex: Female

DRUGS (18)
  1. ENBREL [Suspect]
     Indication: RHEUMATOID ARTHRITIS
     Dosage: 50 MG, WEEKLY
     Route: 065
     Dates: start: 200403
  2. ENBREL [Suspect]
     Dosage: 50 MG, QWK
     Route: 065
  3. ENBREL [Suspect]
     Dosage: 50 MG, QWK
     Route: 065
  4. ENBREL [Suspect]
     Dosage: 50 MG, QWK
     Route: 065
  5. ENBREL [Suspect]
     Dosage: 50 MG, QWK
     Route: 065
  6. ENBREL [Suspect]
     Dosage: 50 MG, QWK
     Route: 065
  7. ENBREL [Suspect]
     Dosage: 50 MG, QWK
     Route: 065
  8. ENBREL [Suspect]
     Dosage: 50 MG, QWK
     Route: 065
  9. ENBREL [Suspect]
     Dosage: 50 MG, QWK
     Route: 065
  10. ENBREL [Suspect]
     Dosage: 50 MG, QWK
     Route: 065
  11. ENBREL [Suspect]
     Dosage: 50 MG, QWK
     Route: 065
  12. ENBREL [Suspect]
     Dosage: 50 MG, QWK
     Route: 065
  13. ENBREL [Suspect]
     Dosage: UNK
     Route: 065
  14. ENBREL [Suspect]
     Dosage: UNK
     Route: 065
  15. ENBREL [Suspect]
     Dosage: UNK
     Route: 065
     Dates: end: 201312
  16. METHOTREXATE SODIUM [Suspect]
     Indication: RHEUMATOID ARTHRITIS
     Dosage: UNK
     Route: 065
     Dates: start: 1995
  17. METHOTREXATE SODIUM [Suspect]
     Dosage: 7.5 MG, WEEKLY
     Route: 065
     Dates: start: 2005, end: 20131218
  18. ALLOPURINOL [Concomitant]
     Dosage: 300 MG, DAILY

REACTIONS (1)
  - Hodgkin^s disease stage III [Unknown]
